FAERS Safety Report 8409902-2 (Version None)
Quarter: 2012Q2

REPORT INFORMATION
  Report Type: 
  Country: None (occurrence: None)
  Receive Date: 20120529
  Receipt Date: 20120522
  Transmission Date: 20120825
  Serious: Yes (Other)
  Sender: FDA-Public Use
  Company Number: DSA_48178_2011

PATIENT
  Sex: Female

DRUGS (2)
  1. XENAZINE [Suspect]
     Indication: HUNTINGTON'S DISEASE
     Dosage: 12.5 MG TID ORAL
     Route: 048
     Dates: start: 20110801
  2. XENAZINE [Suspect]
     Indication: DYSKINESIA
     Dosage: 12.5 MG TID ORAL
     Route: 048
     Dates: start: 20110801

REACTIONS (4)
  - AGITATION [None]
  - KNEE ARTHROPLASTY [None]
  - AGGRESSION [None]
  - NEGATIVISM [None]
